FAERS Safety Report 5369607-1 (Version None)
Quarter: 2007Q2

REPORT INFORMATION
  Report Type: 
  Country: None (occurrence: None)
  Receive Date: 20070625
  Receipt Date: 20070618
  Transmission Date: 20071010
  Serious: Yes (Other)
  Sender: FDA-Public Use
  Company Number: DE-PFIZER INC-2007023655

PATIENT
  Sex: Male
  Weight: 68 kg

DRUGS (4)
  1. AZULFIDINE [Suspect]
     Indication: COLITIS ULCERATIVE
     Dosage: TEXT:1-2 GRAMS
     Route: 048
  2. CORTISONE ACETATE [Concomitant]
  3. BECLOMETHASONE DIPROPIONATE [Concomitant]
  4. SEREVENT [Concomitant]
     Dates: start: 20030101

REACTIONS (1)
  - MYCOSIS FUNGOIDES [None]
